FAERS Safety Report 8317808-2 (Version None)
Quarter: 2012Q2

REPORT INFORMATION
  Report Type: 
  Country: None (occurrence: None)
  Receive Date: 20120427
  Receipt Date: 20120419
  Transmission Date: 20120825
  Serious: Yes (Other)
  Sender: FDA-Public Use
  Company Number: US-BAYER-2011-123168

PATIENT
  Age: 33 Year
  Sex: Female
  Weight: 66 kg

DRUGS (10)
  1. ORAL CONTRACEPTIVE NOS [Concomitant]
     Dosage: UNK
     Dates: start: 19950101, end: 20100101
  2. CLINDAMYCIN [Concomitant]
     Dosage: 300 MG, QD
     Dates: start: 20100223
  3. CRYSELLE [Concomitant]
     Dosage: UNK
  4. YASMIN [Suspect]
     Indication: CONTRACEPTION
     Dosage: UNK
     Dates: start: 20030828, end: 20040201
  5. MULTI-VITAMIN [Concomitant]
     Dosage: 2 TABS DAILY
     Route: 048
     Dates: start: 20100223
  6. LO/OVRAL-28 [Concomitant]
     Dosage: UNK
     Dates: start: 20100112
  7. YAZ [Suspect]
     Indication: CONTRACEPTION
     Dosage: UNK
     Dates: start: 20080301, end: 20100201
  8. NAPROXEN (ALEVE) [Concomitant]
     Dosage: AS DIRECTED
     Route: 048
     Dates: start: 20100126
  9. DROSPIRENONE AND ETHINYL ESTRADIOL [Suspect]
     Indication: CONTRACEPTION
     Dosage: UNK
     Dates: start: 20080101
  10. HYDROCODONE BITARTRATE + ACETAMINOPHEN [Concomitant]
     Dosage: 7.5/500, AS NEEDED
     Route: 048
     Dates: start: 20100126, end: 20100223

REACTIONS (7)
  - CHOLELITHIASIS [None]
  - PAIN [None]
  - OEDEMA PERIPHERAL [None]
  - CHOLECYSTITIS [None]
  - DEEP VEIN THROMBOSIS [None]
  - ABDOMINAL PAIN [None]
  - PAIN IN EXTREMITY [None]
